FAERS Safety Report 12237314 (Version 1)
Quarter: 2016Q2

REPORT INFORMATION
  Report Type: Spontaneous
  Country: US (occurrence: None)
  Receive Date: 20160404
  Receipt Date: 20160404
  Transmission Date: 20160815
  Serious: Yes (Other)
  Sender: FDA-Public Use
  Company Number: None

PATIENT
  Age: 67 Year
  Sex: Male
  Weight: 74.84 kg

DRUGS (20)
  1. RANITIDINE HCL [Concomitant]
     Active Substance: RANITIDINE HYDROCHLORIDE
  2. MAGNESIUM [Concomitant]
     Active Substance: MAGNESIUM
  3. PHOSPATIDYLSERINE [Concomitant]
  4. ZINC [Concomitant]
     Active Substance: ZINC\ZINC CHLORIDE
  5. PROBIOTIC [Concomitant]
     Active Substance: PROBIOTICS NOS
  6. DORZOLAMIDE [Concomitant]
     Active Substance: DORZOLAMIDE
  7. SIMVASTATIN. [Concomitant]
     Active Substance: SIMVASTATIN
  8. ASPIRIN. [Concomitant]
     Active Substance: ASPIRIN
  9. VITAMIN B12 [Concomitant]
     Active Substance: CYANOCOBALAMIN
  10. BETA CAROTENE [Concomitant]
  11. ASCORBIC ACID. [Concomitant]
     Active Substance: ASCORBIC ACID
  12. OMEGA-3 FISH OIL [Concomitant]
     Active Substance: FISH OIL\OMEGA-3 FATTY ACIDS
  13. OSTEOTEC UC-II [Concomitant]
  14. TRAVOPROST [Concomitant]
     Active Substance: TRAVOPROST
  15. E [Concomitant]
  16. EFFIENT [Suspect]
     Active Substance: PRASUGREL HYDROCHLORIDE
     Indication: VASCULAR STENT INSERTION
     Dosage: 30 TABLET (S) IN THE MORNING TAKEN BY MOUTH
     Route: 048
     Dates: start: 20160324, end: 20160329
  17. BRILINTA/TICAGRELOR [Concomitant]
  18. VITAMIN D3 [Concomitant]
     Active Substance: CHOLECALCIFEROL
  19. COENZYME Q10 [Concomitant]
     Active Substance: UBIDECARENONE
  20. ULTRAZYME BRAND [LIPASE/AMYLASE/PROTEASE AND BROMELAIN] ENZYMATIC DIGESTANT [Concomitant]

REACTIONS (8)
  - Thirst decreased [None]
  - Hypersomnia [None]
  - Dyspnoea [None]
  - Decreased appetite [None]
  - Confusional state [None]
  - Abdominal distension [None]
  - Asthenia [None]
  - Insomnia [None]

NARRATIVE: CASE EVENT DATE: 20160324
